FAERS Safety Report 7850217-9 (Version None)
Quarter: 2011Q4

REPORT INFORMATION
  Report Type: 
  Country: None (occurrence: None)
  Receive Date: 20111026
  Receipt Date: 20110921
  Transmission Date: 20120403
  Serious: Yes (Hospitalization)
  Sender: FDA-Public Use
  Company Number: RS-JNJFOC-20111009930

PATIENT
  Sex: Male
  Weight: 74 kg

DRUGS (10)
  1. REMICADE [Suspect]
     Route: 042
     Dates: start: 20110517
  2. REMICADE [Suspect]
     Route: 042
     Dates: start: 20101103
  3. PRONISON [Concomitant]
     Dates: start: 20110720
  4. MELOXICAM [Concomitant]
  5. REMICADE [Suspect]
     Indication: RHEUMATOID ARTHRITIS
     Route: 042
     Dates: start: 20101201
  6. FOLAN [Concomitant]
     Dosage: 5 MG AFTER TAKING METHOTREXATE
  7. REMICADE [Suspect]
     Route: 042
     Dates: start: 20110322
  8. REMICADE [Suspect]
     Dosage: 3 MG/KG
     Route: 042
     Dates: start: 20101020
  9. REMICADE [Suspect]
     Route: 042
     Dates: start: 20110105
  10. REMICADE [Suspect]
     Route: 042
     Dates: start: 20110711

REACTIONS (1)
  - ACUTE MYOCARDIAL INFARCTION [None]
